FAERS Safety Report 9086211 (Version 1)
Quarter: 2013Q1

REPORT INFORMATION
  Report Type: Spontaneous
  Country: US (occurrence: US)
  Receive Date: 20130201
  Receipt Date: 20130201
  Transmission Date: 20140127
  Serious: No
  Sender: FDA-Public Use
  Company Number: US-PFIZER INC-2013039328

PATIENT
  Sex: Female

DRUGS (3)
  1. NEURONTIN [Suspect]
     Indication: FIBROMYALGIA
     Dosage: 100 MG, 3X/DAY
  2. NEURONTIN [Suspect]
     Dosage: 200 MG, 3X/DAY
     Dates: end: 20130127
  3. NEURONTIN [Suspect]
     Dosage: 300 MG, 3X/DAY
     Dates: start: 20130127

REACTIONS (2)
  - Pain [Unknown]
  - Off label use [Unknown]
